FAERS Safety Report 9925237 (Version 1)
Quarter: 2014Q1

REPORT INFORMATION
  Report Type: Spontaneous
  Country: GB (occurrence: GB)
  Receive Date: 20140226
  Receipt Date: 20140226
  Transmission Date: 20141002
  Serious: Yes (Other)
  Sender: FDA-Public Use
  Company Number: GB-PFIZER INC-2014052006

PATIENT
  Age: 23 Year
  Sex: Female

DRUGS (4)
  1. PREGABALIN [Suspect]
     Indication: NEURALGIA
     Dosage: 50 MG, 1X/DAY
     Route: 048
     Dates: start: 20140203, end: 20140206
  2. PREGABALIN [Suspect]
     Dosage: 50 MG, 2X/DAY
     Route: 048
     Dates: start: 20140207, end: 20140209
  3. PREGABALIN [Suspect]
     Dosage: 50 MG, 3X/DAY
     Route: 048
     Dates: start: 20140210, end: 20140210
  4. GABAPENTIN [Concomitant]
     Dosage: GABAPENTIN STOPPED 4 DAYS PRIOR TO STARTING PREGABALIN
     Dates: end: 20140130

REACTIONS (3)
  - Hypoventilation [Unknown]
  - Sinus tachycardia [Unknown]
  - Euphoric mood [Not Recovered/Not Resolved]
